FAERS Safety Report 7000781-7 (Version None)
Quarter: 2010Q3

REPORT INFORMATION
  Report Type: 
  Country: None (occurrence: None)
  Receive Date: 20100920
  Receipt Date: 20091217
  Transmission Date: 20110219
  Serious: No
  Sender: FDA-Public Use
  Company Number: US-ASTRAZENECA-2009UW21106

PATIENT
  Age: 35 Year
  Sex: Male
  Weight: 140.6 kg

DRUGS (5)
  1. SEROQUEL [Suspect]
     Indication: BIPOLAR DISORDER
     Route: 048
     Dates: start: 20070101, end: 20070101
  2. HALDOL [Concomitant]
     Dates: start: 20090501, end: 20090601
  3. RISPERDAL [Concomitant]
     Dates: start: 20070201, end: 20090101
  4. THORAZINE [Concomitant]
     Dates: start: 19970101, end: 19980101
  5. WELLBUTRIN [Concomitant]

REACTIONS (4)
  - BLOOD CHOLESTEROL INCREASED [None]
  - OBESITY [None]
  - TYPE 1 DIABETES MELLITUS [None]
  - TYPE 2 DIABETES MELLITUS [None]
